FAERS Safety Report 6644827-4 (Version None)
Quarter: 2010Q1

REPORT INFORMATION
  Report Type: 
  Country: None (occurrence: None)
  Receive Date: 20100322
  Receipt Date: 20100317
  Transmission Date: 20100710
  Serious: Yes (Hospitalization)
  Sender: FDA-Public Use
  Company Number: A0850409A

PATIENT
  Age: 59 Year
  Sex: Male

DRUGS (1)
  1. ALLI [Suspect]
     Route: 048
     Dates: start: 20090501, end: 20100310

REACTIONS (10)
  - ABASIA [None]
  - ARTHRALGIA [None]
  - BLOOD CHOLESTEROL INCREASED [None]
  - ILL-DEFINED DISORDER [None]
  - MUSCLE SWELLING [None]
  - MYALGIA [None]
  - NERVE COMPRESSION [None]
  - NERVE INJURY [None]
  - PARALYSIS [None]
  - SCIATICA [None]
